FAERS Safety Report 8000398-1 (Version None)
Quarter: 2011Q4

REPORT INFORMATION
  Report Type: 
  Country: None (occurrence: None)
  Receive Date: 20111123
  Receipt Date: 20110815
  Transmission Date: 20120403
  Serious: Yes (Other)
  Sender: FDA-Public Use
  Company Number: 330876

PATIENT
  Age: 47 Year
  Sex: Male
  Weight: 116.6 kg

DRUGS (7)
  1. AMLODIPINE [Concomitant]
  2. NIASPAN ER (NICOTINIC ACID) [Concomitant]
  3. QUINAPRIL HCL [Concomitant]
  4. FENOFIBRATE [Concomitant]
  5. GLIPIZIDE [Concomitant]
  6. VICTOZA [Suspect]
     Indication: TYPE 2 DIABETES MELLITUS
     Dosage: 1.2 MG, QD, SUBCUTANEOUS
     Route: 058
     Dates: start: 20110408, end: 20110616
  7. METFORMIN HCL [Concomitant]

REACTIONS (2)
  - PANCREATITIS [None]
  - LIPASE INCREASED [None]
